FAERS Safety Report 22265233 (Version 1)
Quarter: 2023Q2

REPORT INFORMATION
  Report Type: Spontaneous
  Country: US (occurrence: US)
  Receive Date: 20230428
  Receipt Date: 20230428
  Transmission Date: 20230722
  Serious: Yes (Other)
  Sender: FDA-Public Use
  Company Number: US-RADIUS HEALTH, INC.-2023US001391

PATIENT
  Sex: Female

DRUGS (1)
  1. TYMLOS [Suspect]
     Active Substance: ABALOPARATIDE
     Indication: Osteoporosis
     Dosage: 80 MICROGRAM, QD
     Route: 058
     Dates: start: 20230228

REACTIONS (5)
  - Malignant melanoma [Unknown]
  - Pollakiuria [Not Recovered/Not Resolved]
  - Hypoaesthesia [Unknown]
  - Musculoskeletal stiffness [Unknown]
  - Product quality issue [Unknown]
